FAERS Safety Report 4510762-0 (Version None)
Quarter: 2004Q4

REPORT INFORMATION
  Report Type: 
  Country: None (occurrence: None)
  Receive Date: 20041122
  Receipt Date: 20041115
  Transmission Date: 20050328
  Serious: Yes (Disabling)
  Sender: FDA-Public Use
  Company Number: 200410608BYL

PATIENT
  Age: 72 Year
  Sex: Female
  Weight: 80 kg

DRUGS (8)
  1. ADALAT [Suspect]
     Dosage: 20 MG, BID, ORAL
     Route: 048
  2. OLMETEC (OLMESARTAN MEDOXOMIL) [Suspect]
     Dosage: 20 MG, BID, ORAL
     Route: 048
  3. PURSENNID (SENNA ALEXANDRINA LEAF) [Suspect]
     Dosage: 36 MG, TID, ORAL
     Route: 048
  4. PERSANTIN [Suspect]
     Dosage: 12.5 MG, TID, ORAL
     Route: 048
  5. RINDERON-VG [Concomitant]
  6. MILTAX [Concomitant]
  7. PRORENAL [Concomitant]
  8. AZELASTINE HCL [Concomitant]

REACTIONS (1)
  - ARRHYTHMIA [None]
